FAERS Safety Report 17540629 (Version 1)
Quarter: 2020Q1

REPORT INFORMATION
  Report Type: Spontaneous
  Country: NL (occurrence: FR)
  Receive Date: 20200313
  Receipt Date: 20200313
  Transmission Date: 20200409
  Serious: Yes (Life-Threatening)
  Sender: FDA-Public Use
  Company Number: FR-FRESENIUS KABI-FK202002416

PATIENT
  Age: 53 Year
  Sex: Female
  Weight: 78.5 kg

DRUGS (4)
  1. PROPOFOL (MANUFACTURER UNKNOWN) [Suspect]
     Active Substance: PROPOFOL
     Indication: ENDOTRACHEAL INTUBATION
     Route: 041
     Dates: start: 20200130, end: 20200130
  2. CEFAZOLIN [Suspect]
     Active Substance: CEFAZOLIN
     Indication: ENDOTRACHEAL INTUBATION
     Route: 041
     Dates: start: 20200130, end: 20200130
  3. SUFENTANIL [Suspect]
     Active Substance: SUFENTANIL
     Indication: ENDOTRACHEAL INTUBATION
     Route: 041
     Dates: start: 20200130, end: 20200130
  4. SUCCINYLCHOLINE CHLORIDE. [Suspect]
     Active Substance: SUCCINYLCHOLINE CHLORIDE
     Indication: ENDOTRACHEAL INTUBATION
     Route: 041
     Dates: start: 20200130, end: 20200130

REACTIONS (2)
  - Anaphylactic shock [Recovered/Resolved]
  - Cardio-respiratory arrest [Recovered/Resolved]

NARRATIVE: CASE EVENT DATE: 20200130
